FAERS Safety Report 21027110 (Version 6)
Quarter: 2022Q4

REPORT INFORMATION
  Report Type: Report from Study
  Country: NO (occurrence: None)
  Receive Date: 20220630
  Receipt Date: 20221014
  Transmission Date: 20230113
  Serious: Yes (Hospitalization)
  Sender: FDA-Public Use
  Company Number: NO-ROCHE-3126666

PATIENT
  Age: 80 Year
  Sex: Female

DRUGS (14)
  1. RITUXIMAB [Suspect]
     Active Substance: RITUXIMAB
     Indication: Diffuse large B-cell lymphoma
     Dosage: ON 23/JUN/2022, SHE RECEIVED THE MOST RECENT DOSE OF THE STUDY DRUGS.?ON 15/SEP/2022, SHE RECEIVED T
     Route: 041
     Dates: start: 20220602
  2. POLATUZUMAB VEDOTIN [Suspect]
     Active Substance: POLATUZUMAB VEDOTIN
     Indication: Diffuse large B-cell lymphoma
     Dosage: ON 23/JUN/2022, SHE RECEIVED THE MOST RECENT DOSE OF THE STUDY DRUGS.?ON 15/SEP/2022, SHE RECEIVED T
     Route: 042
     Dates: start: 20220602
  3. CYCLOPHOSPHAMIDE [Suspect]
     Active Substance: CYCLOPHOSPHAMIDE
     Indication: Diffuse large B-cell lymphoma
     Dosage: ON 23/JUN/2022, SHE RECEIVED THE MOST RECENT DOSE OF THE STUDY DRUGS.?ON 15/SEP/2022, SHE RECEIVED T
     Route: 042
     Dates: start: 20220602
  4. DOXORUBICIN [Suspect]
     Active Substance: DOXORUBICIN
     Indication: Diffuse large B-cell lymphoma
     Dosage: ON 23/JUN/2022, SHE RECEIVED THE MOST RECENT DOSE OF THE STUDY DRUGS.?ON 15/SEP/2022, SHE RECEIVED T
     Route: 042
     Dates: start: 20220602
  5. PREDNISONE [Suspect]
     Active Substance: PREDNISONE
     Indication: Diffuse large B-cell lymphoma
     Dosage: ON 23/JUN/2022 AND 27/JUN/2022, SHE RECEIVED THE MOST RECENT DOSE OF THE STUDY DRUGS.?ON 15/SEP/2022
     Route: 048
     Dates: start: 20220602
  6. NEXIUM [Concomitant]
     Active Substance: ESOMEPRAZOLE MAGNESIUM
     Dosage: 40 MG X1
     Route: 065
  7. ASPIRIN\MAGNESIUM OXIDE [Concomitant]
     Active Substance: ASPIRIN\MAGNESIUM OXIDE
     Dosage: 75 MG X1
     Route: 065
  8. METOPROLOL SUCCINATE [Concomitant]
     Active Substance: METOPROLOL SUCCINATE
     Dosage: 25 MG X 2
     Route: 065
  9. CRESTOR [Concomitant]
     Active Substance: ROSUVASTATIN CALCIUM
     Indication: Hypercholesterolaemia
     Route: 065
  10. CRESTOR [Concomitant]
     Active Substance: ROSUVASTATIN CALCIUM
     Indication: Hypercholesterolaemia
  11. LEVOTHYROXINE SODIUM [Concomitant]
     Active Substance: LEVOTHYROXINE SODIUM
     Indication: Hypothyroidism
     Dosage: 100 MICROGRAM X1
     Route: 065
  12. HIPREX (NORWAY) [Concomitant]
     Dosage: 1 G X1
     Route: 065
  13. MOVICOL [Concomitant]
     Active Substance: POLYETHYLENE GLYCOL 3350\POTASSIUM CHLORIDE\SODIUM BICARBONATE\SODIUM CHLORIDE
     Indication: Constipation
  14. IMOVANE [Concomitant]
     Active Substance: ZOPICLONE
     Indication: Insomnia

REACTIONS (2)
  - Hypomagnesaemia [Recovered/Resolved]
  - Sepsis [Recovered/Resolved]

NARRATIVE: CASE EVENT DATE: 20220623
